FAERS Safety Report 5215180-8 (Version None)
Quarter: 2007Q1

REPORT INFORMATION
  Report Type: 
  Country: None (occurrence: None)
  Receive Date: 20070122
  Receipt Date: 20070110
  Transmission Date: 20070707
  Serious: Yes (Other)
  Sender: FDA-Public Use
  Company Number: GB-PFIZER INC-2007004005

PATIENT
  Age: 56 Year
  Sex: Male
  Weight: 89 kg

DRUGS (18)
  1. LYRICA [Suspect]
     Indication: NEURALGIA
     Route: 048
  2. CO-CODAMOL [Concomitant]
  3. MACROGOL [Concomitant]
     Route: 048
     Dates: start: 20060406
  4. MOMETASONE FUROATE [Concomitant]
     Dates: start: 20061002
  5. OXYCODONE HCL [Concomitant]
     Dates: start: 20060928
  6. PROCHLORPERAZINE MALEATE [Concomitant]
     Dosage: DAILY DOSE:5MG
     Dates: start: 20060928
  7. AMITRIPTYLINE HYDROCHLORIDE [Concomitant]
     Dates: start: 20060815
  8. CITALOPRAM HYDROBROMIDE [Concomitant]
     Dates: start: 20040525
  9. CO-PROXAMOL [Concomitant]
     Dates: start: 20050107
  10. DIHYDROCODEINE BITARTRATE INJ [Concomitant]
     Dates: start: 20060130
  11. ERYTHROMYCIN [Concomitant]
     Dates: start: 20040610
  12. FUCIDINE CAP [Concomitant]
     Dates: start: 20060220
  13. GENTAMICIN SULFATE [Concomitant]
     Dates: start: 20040629
  14. HYDROCORTISONE ACETATE [Concomitant]
     Dates: start: 20040629
  15. PARACETAMOL [Concomitant]
     Dates: start: 20060621
  16. PSEUDOEPHEDRINE HYDROCHLORIDE [Concomitant]
     Dates: start: 20040610
  17. TRAMADOL HCL [Concomitant]
     Dates: start: 20060817
  18. PREGABALIN [Concomitant]
     Dates: start: 20051128

REACTIONS (2)
  - DEPRESSION [None]
  - SUICIDAL IDEATION [None]
